FAERS Safety Report 9380467 (Version 1)
Quarter: 2013Q2

REPORT INFORMATION
  Report Type: Spontaneous
  Country: FR (occurrence: None)
  Receive Date: 20130628
  Receipt Date: 20130628
  Transmission Date: 20140414
  Serious: Yes (Other)
  Sender: FDA-Public Use
  Company Number: 2013P1009908

PATIENT
  Sex: 0

DRUGS (1)
  1. NICARDIPINE [Suspect]
     Indication: PRETERM PREMATURE RUPTURE OF MEMBRANES

REACTIONS (2)
  - Maternal drugs affecting foetus [None]
  - Neonatal hypotension [None]
